FAERS Safety Report 11899457 (Version 1)
Quarter: 2016Q1

REPORT INFORMATION
  Report Type: Report from Study
  Country: US (occurrence: US)
  Receive Date: 20160108
  Receipt Date: 20160108
  Transmission Date: 20160526
  Serious: No
  Sender: FDA-Public Use
  Company Number: US-ABBVIE-15P-163-1431358-00

PATIENT
  Age: 56 Year
  Sex: Male

DRUGS (3)
  1. MODERIBA [Suspect]
     Active Substance: RIBAVIRIN
     Indication: HEPATITIS C
     Dosage: 600 MILLIGRAMS IN AM AND 600 MILLIGRAMS IN PM
     Route: 048
     Dates: start: 20150608, end: 201507
  2. MODERIBA [Suspect]
     Active Substance: RIBAVIRIN
     Dosage: 400 MILLIGRAMS IN AM AND 300 MILLIGRAMS IN PM
     Route: 048
     Dates: start: 201507
  3. VIEKIRA PAK [Suspect]
     Active Substance: DASABUVIR\OMBITASVIR\PARITAPREVIR\RITONAVIR
     Indication: HEPATITIS C
     Route: 048
     Dates: start: 20150608

REACTIONS (2)
  - Rash [Recovered/Resolved]
  - Haemoglobin decreased [Not Recovered/Not Resolved]

NARRATIVE: CASE EVENT DATE: 201507
